FAERS Safety Report 19392761 (Version 1)
Quarter: 2021Q2

REPORT INFORMATION
  Report Type: Spontaneous
  Country: US (occurrence: US)
  Receive Date: 20210609
  Receipt Date: 20210609
  Transmission Date: 20210717
  Serious: Yes (Other)
  Sender: FDA-Public Use
  Company Number: US-ORGANON-O2106USA000254

PATIENT
  Sex: Male

DRUGS (1)
  1. PROPECIA [Suspect]
     Active Substance: FINASTERIDE
     Dosage: UNK
     Route: 048
     Dates: start: 1991

REACTIONS (3)
  - Lung carcinoma cell type unspecified stage IV [Recovered/Resolved]
  - Depressed mood [Not Recovered/Not Resolved]
  - Product availability issue [Unknown]
